FAERS Safety Report 7541793-4 (Version None)
Quarter: 2011Q2

REPORT INFORMATION
  Report Type: 
  Country: None (occurrence: None)
  Receive Date: 20110613
  Receipt Date: 20110601
  Transmission Date: 20111010
  Serious: Yes (Other)
  Sender: FDA-Public Use
  Company Number: FR-JNJFOC-20110406204

PATIENT
  Sex: Female

DRUGS (1)
  1. RISPERDAL CONSTA [Suspect]
     Indication: PRODUCT USED FOR UNKNOWN INDICATION
     Route: 030

REACTIONS (5)
  - DEVICE MALFUNCTION [None]
  - WRONG DEVICE USED [None]
  - PRODUCT QUALITY ISSUE [None]
  - DEVICE OCCLUSION [None]
  - PROCEDURAL COMPLICATION [None]
